FAERS Safety Report 6792950-6 (Version None)
Quarter: 2010Q2

REPORT INFORMATION
  Report Type: 
  Country: None (occurrence: None)
  Receive Date: 20100624
  Receipt Date: 20081110
  Transmission Date: 20101027
  Serious: No
  Sender: FDA-Public Use
  Company Number: US-PFIZER INC-2008081594

PATIENT
  Sex: Female

DRUGS (2)
  1. SUTENT [Suspect]
     Indication: THYROID CANCER METASTATIC
  2. SUTENT [Suspect]
     Indication: OFF LABEL USE

REACTIONS (4)
  - DECREASED APPETITE [None]
  - DRUG INTOLERANCE [None]
  - NAUSEA [None]
  - OFF LABEL USE [None]
